FAERS Safety Report 5472595-0 (Version None)
Quarter: 2007Q4

REPORT INFORMATION
  Report Type: 
  Country: None (occurrence: None)
  Receive Date: 20071001
  Receipt Date: 20070307
  Transmission Date: 20080405
  Serious: No
  Sender: FDA-Public Use
  Company Number: US-ASTRAZENECA-2005UW06337

PATIENT
  Age: 64 Year
  Sex: Female
  Weight: 65.3 kg

DRUGS (12)
  1. ARIMIDEX [Suspect]
     Indication: BREAST CANCER
     Route: 048
     Dates: start: 20050901
  2. KLOR-CON [Concomitant]
  3. NEXIUM [Concomitant]
     Route: 048
  4. OSCAL [Concomitant]
  5. ATENOLOL [Concomitant]
     Route: 048
  6. GLUTOFAC [Concomitant]
  7. VYTORIN [Concomitant]
     Dosage: 10/20
  8. LEXAPRO [Concomitant]
  9. EXTENDRYL [Concomitant]
  10. DYAZIDE [Concomitant]
  11. CRANBERRY PILLS [Concomitant]
  12. TRIMETHOPRINE [Concomitant]

REACTIONS (4)
  - ALOPECIA [None]
  - ARTHRALGIA [None]
  - HOT FLUSH [None]
  - ONYCHOCLASIS [None]
